FAERS Safety Report 23011674 (Version 13)
Quarter: 2024Q4

REPORT INFORMATION
  Report Type: Spontaneous
  Country: US (occurrence: US)
  Receive Date: 20230929
  Receipt Date: 20241231
  Transmission Date: 20250115
  Serious: Yes (Hospitalization)
  Sender: PFIZER
  Company Number: US-PFIZER INC-202300311051

PATIENT
  Age: 66 Year
  Sex: Male
  Weight: 102.06 kg

DRUGS (5)
  1. SOMAVERT [Suspect]
     Active Substance: PEGVISOMANT
     Indication: Acromegaly
     Dosage: 20 MG, 3 TIMES A WEEK
     Dates: start: 202306
  2. SOMAVERT [Suspect]
     Active Substance: PEGVISOMANT
     Dosage: 20 MG, WEEKLY
     Dates: start: 20230906
  3. SOMAVERT [Suspect]
     Active Substance: PEGVISOMANT
     Dosage: 20MG/DAY
  4. SOMAVERT [Suspect]
     Active Substance: PEGVISOMANT
     Dosage: 20MG 5X A WEEK
  5. SOMAVERT [Suspect]
     Active Substance: PEGVISOMANT
     Dosage: 20 MG, 3 TIMES PER WEEK
     Route: 058

REACTIONS (10)
  - Pancreatic carcinoma [Unknown]
  - Blood creatinine increased [Unknown]
  - Influenza like illness [Recovered/Resolved]
  - Oropharyngeal pain [Unknown]
  - Pain [Unknown]
  - Influenza [Unknown]
  - Illness [Unknown]
  - Pain [Unknown]
  - Off label use [Unknown]
  - Incorrect route of product administration [Unknown]
